FAERS Safety Report 4497632-1 (Version None)
Quarter: 2004Q4

REPORT INFORMATION
  Report Type: 
  Country: None (occurrence: None)
  Receive Date: 20041110
  Receipt Date: 20041018
  Transmission Date: 20050328
  Serious: Yes (Hospitalization)
  Sender: FDA-Public Use
  Company Number: US-BRISTOL-MYERS SQUIBB COMPANY-12736666

PATIENT
  Age: 67 Year
  Sex: Male
  Weight: 64 kg

DRUGS (5)
  1. CETUXIMAB [Suspect]
     Indication: COLORECTAL CANCER METASTATIC
     Dosage: 21-JUL-04, THERAPY INITIATED.  TOTAL DOSE ADMINISTERED THIS COURSE= 450MG.
     Route: 042
     Dates: start: 20040831, end: 20040831
  2. IRINOTECAN HCL [Suspect]
     Indication: COLORECTAL CANCER METASTATIC
     Dosage: 21-JUL-04, THERAPY INITIATED.  TOTAL DOSE ADMINISTERED THIS COURSE= 270 MG.
     Route: 042
     Dates: start: 20040831, end: 20040831
  3. FLUOROURACIL [Suspect]
     Indication: COLORECTAL CANCER METASTATIC
     Dosage: 21-JUL-04, THERAPY INITIATED.  TOTAL DOSE ADMINISTERED THIS COURSE= 4200 MG.
     Route: 042
     Dates: start: 20040831, end: 20040831
  4. LEUCOVORIN CALCIUM [Suspect]
     Indication: COLORECTAL CANCER METASTATIC
     Dosage: 21-JUL-04, THERAPY INITIATED.  TOTAL DOSE ADMINISTERED THIS COURSE= 725 MG.
     Route: 042
     Dates: start: 20040831, end: 20040831
  5. COUMADIN [Suspect]
     Dosage: NOT PROVIDED

REACTIONS (2)
  - CEREBRAL HAEMORRHAGE [None]
  - CEREBRAL ISCHAEMIA [None]
